FAERS Safety Report 6174203-2 (Version None)
Quarter: 2009Q2

REPORT INFORMATION
  Report Type: 
  Country: None (occurrence: None)
  Receive Date: 20090430
  Receipt Date: 20080331
  Transmission Date: 20091009
  Serious: No
  Sender: FDA-Public Use
  Company Number: US-ASTRAZENECA-2008UW06382

PATIENT
  Age: 76 Year
  Sex: Female

DRUGS (4)
  1. NEXIUM [Suspect]
     Indication: HELICOBACTER GASTRITIS
     Route: 048
     Dates: start: 20080301
  2. HELIDAC [Concomitant]
  3. SYNTHROID [Concomitant]
  4. TENORMIN [Concomitant]
     Route: 048

REACTIONS (6)
  - ABDOMINAL PAIN [None]
  - BLISTER [None]
  - CHILLS [None]
  - DIARRHOEA [None]
  - FEELING COLD [None]
  - SWELLING [None]
